FAERS Safety Report 4808423-3 (Version None)
Quarter: 2005Q4

REPORT INFORMATION
  Report Type: 
  Country: None (occurrence: None)
  Receive Date: 20051021
  Receipt Date: 20040805
  Transmission Date: 20060501
  Serious: Yes (Other)
  Sender: FDA-Public Use
  Company Number: JP_040804110

PATIENT
  Age: 62 Year
  Sex: Male
  Weight: 61 kg

DRUGS (11)
  1. ZYPREXA [Suspect]
     Indication: SCHIZOPHRENIA
     Dosage: 20 MG DAY
     Dates: start: 20010604, end: 20040716
  2. FLUDECASIN (FLUPHENAZINE DECANOATE) [Concomitant]
  3. AKINETON [Concomitant]
  4. AMOBAN (ZOPICLONE) [Concomitant]
  5. METLIGINE (MIDODRINE HYDROCHLORIDE) [Concomitant]
  6. STOGAR (LAFUTIDINE) [Concomitant]
  7. MAGNESIUM OXIDE [Concomitant]
  8. LAC B (LACTOBACILLUS BIFIDUS, LYOPHILIZED) [Concomitant]
  9. CHINESE MEDICINE [Concomitant]
  10. PANTOSIN (PANTETHINE) [Concomitant]
  11. FURSENNID [Concomitant]

REACTIONS (5)
  - CHRONIC SINUSITIS [None]
  - NASOPHARYNGITIS [None]
  - PHARYNGITIS [None]
  - PLATELET COUNT INCREASED [None]
  - PULSE ABSENT [None]
